FAERS Safety Report 11509893 (Version 2)
Quarter: 2015Q4

REPORT INFORMATION
  Report Type: Spontaneous
  Country: US (occurrence: US)
  Receive Date: 20150915
  Receipt Date: 20151013
  Transmission Date: 20160304
  Serious: No
  Sender: FDA-Public Use
  Company Number: US-JNJFOC-20150723613

PATIENT
  Age: 17 Year
  Sex: Female
  Weight: 63.5 kg

DRUGS (2)
  1. VISINE A [Suspect]
     Active Substance: NAPHAZOLINE HYDROCHLORIDE\PHENIRAMINE MALEATE
     Indication: OCULAR HYPERAEMIA
     Dosage: 1 TIME DAILY IN MORNING
     Route: 047
     Dates: start: 201507, end: 201507
  2. VISINE A [Suspect]
     Active Substance: NAPHAZOLINE HYDROCHLORIDE\PHENIRAMINE MALEATE
     Indication: SEASONAL ALLERGY
     Dosage: 1 TIME DAILY IN MORNING
     Route: 047
     Dates: start: 201507, end: 201507

REACTIONS (2)
  - Eye irritation [Recovered/Resolved]
  - Lacrimation increased [Recovered/Resolved]

NARRATIVE: CASE EVENT DATE: 20150706
